FAERS Safety Report 12334450 (Version 2)
Quarter: 2016Q4

REPORT INFORMATION
  Report Type: Spontaneous
  Country: DK (occurrence: DK)
  Receive Date: 20160504
  Receipt Date: 20161121
  Transmission Date: 20170207
  Serious: Yes (Other)
  Sender: FDA-Public Use
  Company Number: DK-ELI_LILLY_AND_COMPANY-DK201604010665

PATIENT
  Sex: Female

DRUGS (1)
  1. ZYPREXA [Suspect]
     Active Substance: OLANZAPINE
     Indication: SCHIZOPHRENIA
     Dosage: UNK, UNKNOWN
     Route: 065

REACTIONS (13)
  - Speech disorder [Unknown]
  - Visual impairment [Unknown]
  - Suicidal ideation [Unknown]
  - Haematochezia [Unknown]
  - Mood swings [Unknown]
  - Constipation [Unknown]
  - Dyskinesia [Unknown]
  - Acne [Unknown]
  - Face oedema [Unknown]
  - Abnormal behaviour [Unknown]
  - Urinary incontinence [Unknown]
  - Increased appetite [Unknown]
  - Somnolence [Unknown]
